FAERS Safety Report 16759884 (Version 2)
Quarter: 2019Q4

REPORT INFORMATION
  Report Type: Spontaneous
  Country: BR (occurrence: BR)
  Receive Date: 20190830
  Receipt Date: 20191212
  Transmission Date: 20200122
  Serious: Yes (Death, Hospitalization, Other)
  Sender: FDA-Public Use
  Company Number: BR-SHIRE-BR201922528

PATIENT

DRUGS (2)
  1. ELAPRASE [Suspect]
     Active Substance: IDURSULFASE
     Indication: MUCOPOLYSACCHARIDOSIS II
     Dosage: 9.8 MILLILITER, 1X/WEEK
     Route: 042
  2. ELAPRASE [Suspect]
     Active Substance: IDURSULFASE
     Dosage: UNK
     Route: 042
     Dates: start: 20190621

REACTIONS (7)
  - Inguinal hernia [Unknown]
  - Congestive cardiomyopathy [Unknown]
  - Umbilical hernia [Unknown]
  - Septic shock [Unknown]
  - Pneumonia bacterial [Unknown]
  - Sepsis [Unknown]
  - Hernia [Unknown]
